FAERS Safety Report 10776734 (Version 1)
Quarter: 2015Q1

REPORT INFORMATION
  Report Type: Spontaneous
  Country: GB (occurrence: GB)
  Receive Date: 20150209
  Receipt Date: 20150209
  Transmission Date: 20150721
  Serious: Yes (Other)
  Sender: FDA-Public Use
  Company Number: PHHY2015GB012498

PATIENT
  Age: 25 Year
  Sex: Male
  Weight: 107 kg

DRUGS (1)
  1. SUMATRIPTAN. [Suspect]
     Active Substance: SUMATRIPTAN
     Indication: CLUSTER HEADACHE
     Dosage: 0.5 ML, UNK
     Route: 058

REACTIONS (4)
  - Paraesthesia [Recovered/Resolved]
  - Hemiparesis [Recovered/Resolved]
  - Movement disorder [Recovered/Resolved]
  - Sensory loss [Recovered/Resolved]

NARRATIVE: CASE EVENT DATE: 20150116
